FAERS Safety Report 8385679-4 (Version None)
Quarter: 2012Q2

REPORT INFORMATION
  Report Type: 
  Country: None (occurrence: None)
  Receive Date: 20120525
  Receipt Date: 20120521
  Transmission Date: 20120825
  Serious: No
  Sender: FDA-Public Use
  Company Number: US-PFIZER INC-2012123167

PATIENT
  Sex: Male
  Weight: 12.245 kg

DRUGS (1)
  1. CHILDREN'S ADVIL [Suspect]
     Indication: EAR INFECTION
     Dosage: UNK, ONE TEASPOON
     Route: 048
     Dates: start: 20120521

REACTIONS (2)
  - CIRCUMSTANCE OR INFORMATION CAPABLE OF LEADING TO MEDICATION ERROR [None]
  - INSOMNIA [None]
